FAERS Safety Report 7261892-4 (Version None)
Quarter: 2011Q1

REPORT INFORMATION
  Report Type: 
  Country: None (occurrence: None)
  Receive Date: 20110130
  Receipt Date: 20101209
  Transmission Date: 20110831
  Serious: No
  Sender: FDA-Public Use
  Company Number: US-ABBOTT-10P-163-0691053-00

PATIENT
  Sex: Female
  Weight: 113.5 kg

DRUGS (6)
  1. DIOVAN [Concomitant]
     Indication: HYPERTENSION
  2. HUMIRA [Suspect]
     Indication: RHEUMATOID ARTHRITIS
     Route: 058
     Dates: start: 20000101, end: 20000101
  3. METOPROLOL [Concomitant]
     Indication: HYPERTENSION
  4. PROPOXYPHENE NAPSYLATE W/ ACETAMINOPHEN [Concomitant]
     Indication: PAIN
     Dosage: PRN DISCONTINUED RECENTLY
  5. HUMIRA [Suspect]
     Indication: PSORIASIS
     Route: 058
     Dates: start: 20000101, end: 20101101
  6. UNKNOWN PAIN MEDICATION [Concomitant]
     Indication: PAIN

REACTIONS (9)
  - DRY SKIN [None]
  - RASH [None]
  - PSORIASIS [None]
  - SKIN EXFOLIATION [None]
  - SKIN LESION [None]
  - LACERATION [None]
  - PRURITUS [None]
  - RASH ERYTHEMATOUS [None]
  - SKIN ULCER [None]
